FAERS Safety Report 7148006-6 (Version None)
Quarter: 2010Q4

REPORT INFORMATION
  Report Type: 
  Country: None (occurrence: None)
  Receive Date: 20101206
  Receipt Date: 20101206
  Transmission Date: 20110411
  Serious: Yes (Disabling)
  Sender: FDA-Public Use
  Company Number: None

PATIENT
  Age: 54 Year
  Sex: Female
  Weight: 68.0396 kg

DRUGS (1)
  1. K-Y WARMING PERSONAL [Suspect]
     Indication: VAGINAL DISORDER
     Dosage: SMALL AMOUNT USED TWO TIMES ONE WEEK APART

REACTIONS (2)
  - NO THERAPEUTIC RESPONSE [None]
  - URINARY TRACT INFECTION [None]
